FAERS Safety Report 9459087 (Version 1)
Quarter: 2013Q3

REPORT INFORMATION
  Report Type: Spontaneous
  Country: US (occurrence: US)
  Receive Date: 20130814
  Receipt Date: 20130814
  Transmission Date: 20140515
  Serious: Yes (Other)
  Sender: FDA-Public Use
  Company Number: US-BANPHARM-20131552

PATIENT
  Age: 80 Year
  Sex: Female
  Weight: 83.91 kg

DRUGS (3)
  1. ZYRTEC LIQUID GELS 10 MG [Suspect]
     Indication: SEASONAL ALLERGY
     Dosage: 1 DF, ONCE,
     Route: 048
     Dates: start: 20130729, end: 20130729
  2. LISINOPRIL [Concomitant]
     Indication: BLOOD PRESSURE
  3. CLONIDINE [Concomitant]
     Indication: BLOOD PRESSURE

REACTIONS (1)
  - Blood pressure systolic increased [Recovered/Resolved]
